FAERS Safety Report 9119778 (Version 1)
Quarter: 2013Q1

REPORT INFORMATION
  Report Type: Report from Study
  Country: FR (occurrence: FR)
  Receive Date: 20130226
  Receipt Date: 20130226
  Transmission Date: 20140127
  Serious: Yes (Other)
  Sender: FDA-Public Use
  Company Number: FR-GENZYME-CLOF-1002521

PATIENT
  Age: 52 Year
  Sex: Male
  Weight: 77 kg

DRUGS (2)
  1. EVOLTRA [Suspect]
     Indication: ACUTE MYELOID LEUKAEMIA
     Dosage: 57 MG, UNK
     Route: 042
     Dates: start: 20121115, end: 20121119
  2. CYTARABINE [Suspect]
     Indication: ACUTE MYELOID LEUKAEMIA
     Dosage: 1900 MG, UNK
     Route: 042
     Dates: start: 20121114, end: 20121118

REACTIONS (1)
  - Anorectal disorder [Recovered/Resolved]
